FAERS Safety Report 6883770-2 (Version None)
Quarter: 2010Q3

REPORT INFORMATION
  Report Type: 
  Country: None (occurrence: None)
  Receive Date: 20100729
  Receipt Date: 20100723
  Transmission Date: 20110219
  Serious: Yes (Hospitalization)
  Sender: FDA-Public Use
  Company Number: Z0005034A

PATIENT
  Sex: Male
  Weight: 75 kg

DRUGS (1)
  1. CHLORAMBUCIL [Suspect]
     Route: 048
     Dates: start: 20100716

REACTIONS (1)
  - HAEMOLYTIC ANAEMIA [None]
